FAERS Safety Report 20082229 (Version 1)
Quarter: 2021Q4

REPORT INFORMATION
  Report Type: Spontaneous
  Country: CN (occurrence: CN)
  Receive Date: 20211117
  Receipt Date: 20211117
  Transmission Date: 20220303
  Serious: Yes (Life-Threatening, Other)
  Sender: FDA-Public Use
  Company Number: CN-BAYER-2021A250788

PATIENT
  Age: 56 Year
  Sex: Female

DRUGS (2)
  1. GADOBUTROL [Suspect]
     Active Substance: GADOBUTROL
     Indication: Nasal cavity mass
     Dosage: 7.5 ML, ONCE
     Route: 042
     Dates: start: 20211018, end: 20211018
  2. GADOBUTROL [Suspect]
     Active Substance: GADOBUTROL
     Indication: Magnetic resonance imaging

REACTIONS (8)
  - Anaphylactic shock [Recovering/Resolving]
  - Haematemesis [Recovering/Resolving]
  - Muscular weakness [Recovering/Resolving]
  - Rash pruritic [Recovering/Resolving]
  - Urinary incontinence [Recovering/Resolving]
  - Loss of consciousness [Recovering/Resolving]
  - Coma [Recovering/Resolving]
  - Urticaria [Recovering/Resolving]

NARRATIVE: CASE EVENT DATE: 20211018
